FAERS Safety Report 8108126-6 (Version None)
Quarter: 2012Q1

REPORT INFORMATION
  Report Type: 
  Country: None (occurrence: None)
  Receive Date: 20120202
  Receipt Date: 20120126
  Transmission Date: 20120608
  Serious: Yes (Other)
  Sender: FDA-Public Use
  Company Number: SE-PFIZER INC-2011077646

PATIENT
  Age: 59 Year
  Sex: Male

DRUGS (1)
  1. CLINDAMYCIN HCL [Suspect]
     Indication: INFECTION
     Dosage: UNK
     Dates: end: 20090506

REACTIONS (1)
  - LIVER INJURY [None]
